FAERS Safety Report 22783986 (Version 2)
Quarter: 2024Q3

REPORT INFORMATION
  Report Type: Spontaneous
  Country: JP (occurrence: JP)
  Receive Date: 20230803
  Receipt Date: 20240722
  Transmission Date: 20241017
  Serious: Yes (Hospitalization, Other)
  Sender: MALLINCKRODT
  Company Number: JP-MALLINCKRODT-MNK202303491

PATIENT
  Age: 69 Year
  Sex: Female
  Weight: 68 kg

DRUGS (7)
  1. NITRIC OXIDE [Suspect]
     Active Substance: NITRIC OXIDE
     Indication: Pulmonary hypertension
     Dosage: UNKNOWN
     Route: 055
     Dates: start: 20230711, end: 20230711
  2. NITRIC OXIDE [Suspect]
     Active Substance: NITRIC OXIDE
     Dosage: 20 PPM
     Route: 055
     Dates: start: 20230721, end: 20230721
  3. AMIODARONE [Concomitant]
     Active Substance: AMIODARONE
     Dosage: 150 MG OF AMIODARONE AND 500 ML OF 5% IZ 17ML/H
     Dates: start: 20230719, end: 20230721
  4. HEPARIN [Concomitant]
     Active Substance: HEPARIN SODIUM
     Dosage: 1000 U HEPARIN+ 20 ML NS 1ML/H
     Dates: start: 20230719, end: 20230801
  5. MIDAZOLAM [Concomitant]
     Active Substance: MIDAZOLAM
     Dosage: 100 MG MIDAZOLAM+ 20 ML NS 3.5 ML/H
     Dates: start: 20230720, end: 20230728
  6. FENTANYL [Concomitant]
     Active Substance: FENTANYL\FENTANYL CITRATE
     Dosage: 0.5 MG FENTANYL + 10 ML NS 2 ML/H
     Dates: start: 20230719, end: 20230801
  7. NOREPINEPHRINE BITARTRATE [Concomitant]
     Active Substance: NOREPINEPHRINE BITARTRATE
     Dosage: 10 MG NORADRENALINE+ 40 ML NS 2.3 ML/H
     Dates: start: 20230720, end: 20230721

REACTIONS (2)
  - Pulmonary oedema [Recovering/Resolving]
  - Pulmonary hypertension [Recovering/Resolving]

NARRATIVE: CASE EVENT DATE: 20230711
